FAERS Safety Report 6257210-0 (Version None)
Quarter: 2009Q3

REPORT INFORMATION
  Report Type: 
  Country: None (occurrence: None)
  Receive Date: 20090706
  Receipt Date: 20090623
  Transmission Date: 20100115
  Serious: Yes (Hospitalization)
  Sender: FDA-Public Use
  Company Number: DE-ELI_LILLY_AND_COMPANY-DE200906005513

PATIENT
  Age: 44 Year
  Sex: Male
  Weight: 89 kg

DRUGS (11)
  1. ZYPREXA [Suspect]
     Indication: SCHIZOAFFECTIVE DISORDER DEPRESSIVE TYPE
     Dosage: 25 MG, DAILY (1/D)
     Route: 048
     Dates: start: 20080623, end: 20080624
  2. ZYPREXA [Suspect]
     Dosage: 40 MG, DAILY (1/D)
     Route: 048
     Dates: start: 20080625, end: 20080713
  3. ZYPREXA [Suspect]
     Dosage: 30 MG, DAILY (1/D)
     Route: 048
     Dates: start: 20080714, end: 20080819
  4. ZYPREXA [Suspect]
     Dosage: 20 MG, DAILY (1/D)
     Route: 048
     Dates: start: 20080820, end: 20090302
  5. CIPRALEX [Concomitant]
     Dosage: 10 MG, UNK
     Route: 048
     Dates: start: 20080806, end: 20080818
  6. CIPRALEX [Concomitant]
     Dosage: 20 MG, UNK
     Route: 048
     Dates: start: 20080101, end: 20090302
  7. TAVOR [Concomitant]
     Dosage: 4 MG, UNK
     Route: 048
     Dates: start: 20080624, end: 20080626
  8. TAVOR [Concomitant]
     Dosage: 3 MG, UNK
     Route: 048
     Dates: start: 20080627, end: 20080701
  9. TAVOR [Concomitant]
     Dosage: 2 MG, UNK
     Route: 048
     Dates: start: 20080702, end: 20080715
  10. TAVOR [Concomitant]
     Dosage: 1 MG, UNK
     Route: 048
     Dates: start: 20080716, end: 20080721
  11. BISOHEXAL [Concomitant]
     Dosage: 5 MG, UNK
     Route: 048

REACTIONS (4)
  - DEPRESSION [None]
  - HYPERGLYCAEMIA [None]
  - OVERDOSE [None]
  - WEIGHT INCREASED [None]
